FAERS Safety Report 5063135-9 (Version None)
Quarter: 2006Q3

REPORT INFORMATION
  Report Type: 
  Country: None (occurrence: None)
  Receive Date: 20060727
  Receipt Date: 20060718
  Transmission Date: 20061208
  Serious: Yes (Life-Threatening)
  Sender: FDA-Public Use
  Company Number: GB-JNJFOC-20060701874

PATIENT
  Age: 58 Year
  Sex: Male

DRUGS (1)
  1. RISPERDAL CONSTA [Suspect]
     Indication: DRUG USE FOR UNKNOWN INDICATION
     Route: 030

REACTIONS (10)
  - BLOOD SODIUM DECREASED [None]
  - COMA [None]
  - EAR INFECTION [None]
  - HEADACHE [None]
  - INSOMNIA [None]
  - KIDNEY INFECTION [None]
  - LIFE SUPPORT [None]
  - LOWER RESPIRATORY TRACT INFECTION [None]
  - MUSCLE ATROPHY [None]
  - WEIGHT DECREASED [None]
